FAERS Safety Report 13712983 (Version 1)
Quarter: 2017Q3

REPORT INFORMATION
  Report Type: Spontaneous
  Country: IT (occurrence: IT)
  Receive Date: 20170704
  Receipt Date: 20170704
  Transmission Date: 20171127
  Serious: Yes (Other)
  Sender: FDA-Public Use
  Company Number: PHHY2017IT094068

PATIENT
  Age: 45 Year
  Sex: Female

DRUGS (25)
  1. CALENDULA [Concomitant]
     Indication: NUTRITIONAL SUPPLEMENTATION
     Dosage: UNK UNK, QD
     Route: 054
  2. FLEBON 1000 [Concomitant]
     Indication: NUTRITIONAL SUPPLEMENTATION
     Dosage: UNK UNK, QD
     Route: 048
  3. DIOSMINE [Concomitant]
     Active Substance: DIOSMIN
     Indication: NUTRITIONAL SUPPLEMENTATION
     Dosage: UNK UNK, QD
     Route: 048
  4. HESPERIDIN [Concomitant]
     Active Substance: HESPERIDIN
     Indication: NUTRITIONAL SUPPLEMENTATION
     Dosage: UNK UNK, QD
     Route: 048
  5. EN [Concomitant]
     Active Substance: DELORAZEPAM
     Indication: AFFECTIVE DISORDER
     Dosage: 20 DRP, UNK
     Route: 048
  6. MOVICOL [Concomitant]
     Active Substance: POLYETHYLENE GLYCOL 3350\POTASSIUM CHLORIDE\SODIUM BICARBONATE\SODIUM CHLORIDE
     Indication: GASTROINTESTINAL DISORDER
     Dosage: 3 DF, UNK
     Route: 048
  7. LEVOPRAID [Concomitant]
     Active Substance: SULPIRIDE
     Indication: AFFECTIVE DISORDER
     Dosage: 75 MG, UNK
     Route: 048
  8. CENTELLA [Concomitant]
     Indication: NUTRITIONAL SUPPLEMENTATION
     Dosage: UNK UNK, QD
     Route: 054
  9. CIPRALEX [Concomitant]
     Active Substance: ESCITALOPRAM OXALATE
     Indication: AFFECTIVE DISORDER
     Dosage: 20 DRP, UNK
     Route: 048
  10. DIURESIX [Concomitant]
     Active Substance: TORSEMIDE
     Indication: HYPERTENSION
     Dosage: 1 MG, UNK
     Route: 048
  11. LERCADIP [Concomitant]
     Active Substance: LERCANIDIPINE HYDROCHLORIDE
     Indication: HYPERTENSION
     Dosage: 10 MG, UNK
     Route: 048
  12. BUTYLATED HYDROXYTOLUENE [Concomitant]
     Active Substance: BUTYLATED HYDROXYTOLUENE
     Indication: NUTRITIONAL SUPPLEMENTATION
     Dosage: UNK UNK, QD
     Route: 054
  13. FERRO-GRAD [Concomitant]
     Active Substance: FERROUS SULFATE
     Indication: PRODUCT USED FOR UNKNOWN INDICATION
     Dosage: 1 DF, UNK
     Route: 048
  14. RUTINA [Concomitant]
     Indication: NUTRITIONAL SUPPLEMENTATION
     Dosage: UNK UNK, QD
     Route: 048
  15. MELALEUCA [Concomitant]
     Active Substance: MELALEUCA QUINQUENERVIA POLLEN
     Indication: NUTRITIONAL SUPPLEMENTATION
     Dosage: UNK UNK, QD
     Route: 054
  16. GILENYA [Suspect]
     Active Substance: FINGOLIMOD HYDROCHLORIDE
     Indication: RELAPSING-REMITTING MULTIPLE SCLEROSIS
     Dosage: 1 DF, QD
     Route: 048
     Dates: start: 20150722, end: 20170615
  17. DEPAKIN CHRONO [Concomitant]
     Active Substance: VALPROIC ACID
     Indication: AFFECTIVE DISORDER
     Dosage: 1 DF, UNK
     Route: 048
  18. TROXERUTIN [Concomitant]
     Active Substance: TROXERUTIN
     Indication: NUTRITIONAL SUPPLEMENTATION
     Dosage: UNK UNK, QD
     Route: 048
  19. QUERCETIN [Concomitant]
     Active Substance: QUERCETIN
     Indication: NUTRITIONAL SUPPLEMENTATION
     Dosage: UNK UNK, QD
     Route: 048
  20. HYALURONIC ACID [Concomitant]
     Active Substance: HYALURONIC ACID
     Indication: NUTRITIONAL SUPPLEMENTATION
     Dosage: UNK UNK, QD
     Route: 054
  21. GABAPENTIN. [Concomitant]
     Active Substance: GABAPENTIN
     Indication: AFFECTIVE DISORDER
     Dosage: 900 MG, UNK
     Route: 048
  22. ASACOL [Concomitant]
     Active Substance: MESALAMINE
     Indication: GASTROINTESTINAL DISORDER
     Dosage: 1 DF, UNK
     Route: 054
  23. ANTRA [Concomitant]
     Active Substance: OMEPRAZOLE
     Indication: GASTROINTESTINAL DISORDER
     Dosage: 20 MG, UNK
     Route: 048
  24. GAVISCON [Concomitant]
     Active Substance: ALUMINUM HYDROXIDE\MAGNESIUM CARBONATE
     Indication: GASTROINTESTINAL DISORDER
     Dosage: 1 DF, UNK
     Route: 048
  25. ALOE [Concomitant]
     Active Substance: ALOE
     Indication: NUTRITIONAL SUPPLEMENTATION
     Dosage: UNK UNK, QD
     Route: 054

REACTIONS (2)
  - Menstruation irregular [Unknown]
  - Vulvovaginal human papilloma virus infection [Not Recovered/Not Resolved]

NARRATIVE: CASE EVENT DATE: 20170615
